FAERS Safety Report 8612226-1 (Version None)
Quarter: 2012Q3

REPORT INFORMATION
  Report Type: 
  Country: None (occurrence: None)
  Receive Date: 20120813
  Receipt Date: 20120813
  Transmission Date: 20120928
  Serious: Yes (Other)
  Sender: FDA-Public Use
  Company Number: None

PATIENT
  Age: 10 Year
  Sex: Male
  Weight: 32.2054 kg

DRUGS (1)
  1. AZITHROMYCIN [Suspect]
     Indication: EAR INFECTION
     Dosage: 2 TEASPOONS, THEN 1 TEASPOON D 1 PER DAY PO FEW HOURS
     Route: 048
     Dates: start: 20120809, end: 20120809

REACTIONS (2)
  - PRURITUS [None]
  - URTICARIA [None]
